FAERS Safety Report 4640092-8 (Version None)
Quarter: 2005Q2

REPORT INFORMATION
  Report Type: 
  Country: None (occurrence: None)
  Receive Date: 20050411
  Receipt Date: 20050318
  Transmission Date: 20051028
  Serious: Yes (Life-Threatening, Hospitalization)
  Sender: FDA-Public Use
  Company Number: 602175

PATIENT
  Age: 69 Year
  Sex: Female
  Weight: 65 kg

DRUGS (1)
  1. BUMINATE [Suspect]
     Indication: LIVER DISORDER
     Dosage: 15 ML;ONCE;INTRAVENOUS
     Route: 042
     Dates: start: 20040304, end: 20050304

REACTIONS (9)
  - ALANINE AMINOTRANSFERASE INCREASED [None]
  - ANAPHYLACTOID REACTION [None]
  - ASPARTATE AMINOTRANSFERASE INCREASED [None]
  - BLOOD BILIRUBIN INCREASED [None]
  - DYSPNOEA [None]
  - GAMMA-GLUTAMYLTRANSFERASE INCREASED [None]
  - RASH [None]
  - SYNCOPE [None]
  - WHEEZING [None]
